FAERS Safety Report 16277103 (Version 8)
Quarter: 2022Q2

REPORT INFORMATION
  Report Type: Spontaneous
  Country: US (occurrence: US)
  Receive Date: 20190506
  Receipt Date: 20220505
  Transmission Date: 20220720
  Serious: Yes (Hospitalization, Other)
  Sender: FDA-Public Use
  Company Number: US-PFIZER INC-2019183740

PATIENT
  Age: 63 Year
  Sex: Female
  Weight: 68.04 kg

DRUGS (18)
  1. XELJANZ [Suspect]
     Active Substance: TOFACITINIB CITRATE
     Indication: Rheumatoid arthritis
     Dosage: 5 MG, DAILY
  2. XELJANZ [Suspect]
     Active Substance: TOFACITINIB CITRATE
     Indication: Autoimmune disorder
     Dosage: 5 MG, 1X/DAY
     Route: 048
  3. XELJANZ [Suspect]
     Active Substance: TOFACITINIB CITRATE
     Dosage: 5 MG, ALTERNATE DAY [5 MG BY MOUTH ONCE A DAY WAS DECREASED TO 5 MG EVERY OTHER DAY]
     Route: 048
     Dates: start: 201907
  4. XELJANZ [Suspect]
     Active Substance: TOFACITINIB CITRATE
     Dosage: 5 MG, DAILY (10MG, HALF TAB EVERY DAY BY MOUTH)
     Route: 048
     Dates: start: 20210918
  5. XELJANZ [Suspect]
     Active Substance: TOFACITINIB CITRATE
     Dosage: 5 MG
  6. XELJANZ [Suspect]
     Active Substance: TOFACITINIB CITRATE
     Dosage: 5 MG, ALTERNATE DAY (10MG, HALF TABLET OF 5MG EVERY OTHER DAY BY MOUTH)
     Route: 048
     Dates: start: 20211222, end: 2022
  7. XELJANZ [Suspect]
     Active Substance: TOFACITINIB CITRATE
     Dosage: 5 MG, ALTERNATE DAY (EVERY OTHER DAY)
     Route: 048
     Dates: start: 202112, end: 202202
  8. MODERNA COVID-19 VACCINE [Concomitant]
     Active Substance: ELASOMERAN
     Indication: COVID-19 immunisation
     Dosage: DOSE 1, SINGLE
     Dates: start: 20210311, end: 20210311
  9. MODERNA COVID-19 VACCINE [Concomitant]
     Active Substance: ELASOMERAN
     Dosage: DOSE 2, SINGLE
     Dates: start: 20210408, end: 20210408
  10. MODERNA COVID-19 VACCINE [Concomitant]
     Active Substance: ELASOMERAN
     Dosage: DOSE 3, SINGLE
     Dates: start: 20211104, end: 20211104
  11. SHINGRIX [Concomitant]
     Active Substance: RECOMBINANT VARICELLA ZOSTER VIRUS (VZV) GLYCOPROTEIN E
     Indication: Varicella immunisation
     Dosage: DOSE 1, SINGLE
     Dates: start: 20211011, end: 20211011
  12. SHINGRIX [Concomitant]
     Active Substance: RECOMBINANT VARICELLA ZOSTER VIRUS (VZV) GLYCOPROTEIN E
     Dosage: DOSE 2, SINGLE
     Dates: start: 20211208, end: 20211208
  13. PREVNAR 13 [Concomitant]
     Active Substance: PNEUMOCOCCAL 13-VALENT CONJUGATE VACCINE
     Indication: Pneumococcal immunisation
     Dosage: DOSE 1, SINGLE
     Dates: start: 20210922, end: 20210922
  14. PNEUMOVAX 23 [Concomitant]
     Active Substance: PNEUMOCOCCAL VACCINE, POLYVALENT 23
     Indication: Pneumococcal immunisation
     Dosage: DOSE 2, SINGLE
     Dates: start: 20211117, end: 20211117
  15. FLULAVAL [Concomitant]
     Indication: Influenza immunisation
     Dosage: DOSE 1, SINGLE
     Dates: start: 20210909, end: 20210909
  16. ALENDRONATE [Concomitant]
     Active Substance: ALENDRONATE SODIUM
     Dosage: UNK
  17. ALDACTONE [Concomitant]
     Active Substance: SPIRONOLACTONE
     Dosage: UNK
  18. LEVOTHYROXINE [Concomitant]
     Active Substance: LEVOTHYROXINE
     Dosage: UNK

REACTIONS (21)
  - Acute myocardial infarction [Recovering/Resolving]
  - Coronary artery occlusion [Unknown]
  - Arterial occlusive disease [Unknown]
  - Angina pectoris [Unknown]
  - Constipation [Recovering/Resolving]
  - Abdominal pain upper [Recovering/Resolving]
  - Dry mouth [Recovering/Resolving]
  - Gastrooesophageal reflux disease [Recovering/Resolving]
  - Headache [Unknown]
  - Gastrointestinal disorder [Unknown]
  - Confusional state [Unknown]
  - Dry eye [Recovering/Resolving]
  - Dehydration [Recovering/Resolving]
  - Pain in extremity [Unknown]
  - Pain [Unknown]
  - Condition aggravated [Unknown]
  - Blood cholesterol increased [Unknown]
  - Malaise [Unknown]
  - Nausea [Unknown]
  - Off label use [Unknown]
  - Blood pressure abnormal [Unknown]

NARRATIVE: CASE EVENT DATE: 20190701
